FAERS Safety Report 6435311-1 (Version None)
Quarter: 2009Q4

REPORT INFORMATION
  Report Type: 
  Country: None (occurrence: None)
  Receive Date: 20091110
  Receipt Date: 20091022
  Transmission Date: 20100525
  Serious: Yes (Other)
  Sender: FDA-Public Use
  Company Number: PHHY2009US47534

PATIENT
  Age: 69 Year
  Sex: Female

DRUGS (1)
  1. ACLASTA [Suspect]
     Indication: OSTEOPOROSIS POSTMENOPAUSAL
     Dosage: 5 MG, UNK
     Dates: start: 20070401

REACTIONS (4)
  - ARTHRALGIA [None]
  - DISEASE PROGRESSION [None]
  - FEMUR FRACTURE [None]
  - OSTEONECROSIS [None]
